FAERS Safety Report 17158044 (Version 2)
Quarter: 2020Q1

REPORT INFORMATION
  Report Type: Spontaneous
  Country: US (occurrence: US)
  Receive Date: 20191216
  Receipt Date: 20200316
  Transmission Date: 20200409
  Serious: Yes (Other)
  Sender: FDA-Public Use
  Company Number: US-009507513-1912USA005295

PATIENT
  Sex: Female

DRUGS (8)
  1. ETOPOSIDE. [Suspect]
     Active Substance: ETOPOSIDE
  2. VINCRISTINE [Suspect]
     Active Substance: VINCRISTINE
  3. IFOSFAMIDE. [Suspect]
     Active Substance: IFOSFAMIDE
  4. DOXORUBICIN [Suspect]
     Active Substance: DOXORUBICIN
  5. CYCLOPHOSPHAMIDE. [Suspect]
     Active Substance: CYCLOPHOSPHAMIDE
  6. ACTINOMYCIN C3 [Suspect]
     Active Substance: CACTINOMYCIN
  7. IRINOTECAN HYDROCHLORIDE. [Suspect]
     Active Substance: IRINOTECAN HYDROCHLORIDE
  8. TEMODAR [Suspect]
     Active Substance: TEMOZOLOMIDE
     Indication: EWING^S SARCOMA RECURRENT
     Dosage: MILLIGRAM/SQ. METER, QD
     Route: 048
     Dates: start: 2015, end: 201508

REACTIONS (2)
  - Ewing^s sarcoma recurrent [Not Recovered/Not Resolved]
  - Product use in unapproved indication [Unknown]

NARRATIVE: CASE EVENT DATE: 2015
